FAERS Safety Report 13007717 (Version 1)
Quarter: 2016Q4

REPORT INFORMATION
  Report Type: Spontaneous
  Country: US (occurrence: US)
  Receive Date: 20161207
  Receipt Date: 20161207
  Transmission Date: 20170207
  Serious: Yes (Death, Other)
  Sender: FDA-Public Use
  Company Number: US-ABBVIE-16P-163-1730121-00

PATIENT
  Sex: Male

DRUGS (1)
  1. ANDROGEL [Suspect]
     Active Substance: TESTOSTERONE
     Indication: ANDROGEN REPLACEMENT THERAPY
     Route: 061
     Dates: start: 201411, end: 201503

REACTIONS (8)
  - Cerebrovascular accident [Unknown]
  - Cerebrovascular accident [Unknown]
  - Cerebrovascular accident [Unknown]
  - Cerebrovascular accident [Unknown]
  - Injury [Fatal]
  - Cerebrovascular accident [Unknown]
  - Cerebrovascular accident [Fatal]
  - Cerebrovascular accident [Unknown]

NARRATIVE: CASE EVENT DATE: 20150306
